FAERS Safety Report 5484941-2 (Version None)
Quarter: 2007Q4

REPORT INFORMATION
  Report Type: 
  Country: None (occurrence: None)
  Receive Date: 20071011
  Receipt Date: 20071001
  Transmission Date: 20080405
  Serious: Yes (Other)
  Sender: FDA-Public Use
  Company Number: MC200700634

PATIENT

DRUGS (2)
  1. ANGIOMAX, ANGIOX (BIVALRUDIN) INJECTION [Suspect]
     Indication: PERCUTANEOUS CORONARY INTERVENTION
     Dosage: BOLUS, IV BOLUS
     Route: 040
     Dates: start: 20070928, end: 20070928
  2. ANGIOMAX [Suspect]
     Dosage: INTRAVENOUS
     Route: 042
     Dates: start: 20070928

REACTIONS (2)
  - CORONARY ARTERY DISSECTION [None]
  - CORONARY ARTERY THROMBOSIS [None]
